FAERS Safety Report 22171529 (Version 2)
Quarter: 2023Q2

REPORT INFORMATION
  Report Type: Report from Study
  Country: BR (occurrence: BR)
  Receive Date: 20230404
  Receipt Date: 20230410
  Transmission Date: 20230722
  Serious: Yes (Death, Hospitalization)
  Sender: FDA-Public Use
  Company Number: BR-BIOGEN-2023BI01196618

PATIENT
  Sex: Female

DRUGS (1)
  1. TYSABRI [Suspect]
     Active Substance: NATALIZUMAB
     Indication: Multiple sclerosis
     Route: 050

REACTIONS (4)
  - Underweight [Unknown]
  - Pneumonia [Fatal]
  - Choking [Fatal]
  - Multiple sclerosis relapse [Unknown]
